FAERS Safety Report 22029118 (Version 1)
Quarter: 2023Q1

REPORT INFORMATION
  Report Type: Spontaneous
  Country: US (occurrence: None)
  Receive Date: 20230221
  Receipt Date: 20230221
  Transmission Date: 20230417
  Serious: Yes (Other)
  Sender: FDA-Public Use
  Company Number: None

PATIENT
  Age: 66 Year
  Sex: Female
  Weight: 93.9 kg

DRUGS (4)
  1. EMEND (FOSAPREPITANT DIMEGLUMINE) [Suspect]
     Active Substance: FOSAPREPITANT DIMEGLUMINE
     Indication: Prophylaxis of nausea and vomiting
     Route: 042
  2. cyclophosphamide (cytoxan) [Concomitant]
  3. doxorubicin (Adriamycin) [Concomitant]
  4. pembrolizumab (adriamycin) [Concomitant]

REACTIONS (4)
  - Feeling hot [None]
  - Back pain [None]
  - Chest pain [None]
  - Infusion related reaction [None]

NARRATIVE: CASE EVENT DATE: 20230220
